FAERS Safety Report 23847648 (Version 1)
Quarter: 2024Q2

REPORT INFORMATION
  Report Type: Spontaneous
  Country: AE (occurrence: AE)
  Receive Date: 20240513
  Receipt Date: 20240513
  Transmission Date: 20240716
  Serious: Yes (Hospitalization, Other)
  Sender: FDA-Public Use
  Company Number: AE-862174955-ML2024-02876

PATIENT
  Age: 67 Year
  Sex: Male

DRUGS (2)
  1. APIXABAN [Suspect]
     Active Substance: APIXABAN
     Indication: Atrial fibrillation
     Dosage: 5 MG TWICE DAILY
  2. PREDNISOLONE [Concomitant]
     Active Substance: PREDNISOLONE
     Indication: COVID-19 pneumonia
     Dosage: 10 MG ONCE DAILY

REACTIONS (1)
  - Haemorrhagic cholecystitis [Recovering/Resolving]
